FAERS Safety Report 7293677-7 (Version None)
Quarter: 2011Q1

REPORT INFORMATION
  Report Type: 
  Country: None (occurrence: None)
  Receive Date: 20110215
  Receipt Date: 20110204
  Transmission Date: 20110831
  Serious: Yes (Other)
  Sender: FDA-Public Use
  Company Number: B0699001A

PATIENT
  Sex: Female

DRUGS (1)
  1. AUGMENTIN [Suspect]
     Indication: INFECTION
     Route: 065
     Dates: start: 20090526, end: 20090531

REACTIONS (4)
  - HAEMATOCHEZIA [None]
  - ABDOMINAL PAIN UPPER [None]
  - FATIGUE [None]
  - GASTROINTESTINAL PAIN [None]
